FAERS Safety Report 18253695 (Version 13)
Quarter: 2023Q4

REPORT INFORMATION
  Report Type: Report from Study
  Country: CA (occurrence: CA)
  Receive Date: 20200910
  Receipt Date: 20231115
  Transmission Date: 20240110
  Serious: Yes (Hospitalization, Other)
  Sender: FDA-Public Use
  Company Number: None

PATIENT
  Age: 75 Year
  Sex: Female

DRUGS (6)
  1. SANDOSTATIN LAR DEPOT [Suspect]
     Active Substance: OCTREOTIDE ACETATE
     Indication: Carcinoid tumour
     Dosage: 30 MG, QMO
     Route: 030
     Dates: start: 20171124
  2. SANDOSTATIN LAR DEPOT [Suspect]
     Active Substance: OCTREOTIDE ACETATE
     Dosage: 60 MG, QMO
     Route: 030
     Dates: start: 20171124
  3. SANDOSTATIN LAR DEPOT [Suspect]
     Active Substance: OCTREOTIDE ACETATE
     Dosage: 60 MG, QMO
     Route: 030
  4. SANDOSTATIN [Suspect]
     Active Substance: OCTREOTIDE ACETATE
     Indication: Carcinoid tumour
     Dosage: 150 UG, TID
     Route: 058
     Dates: start: 20171122
  5. SANDOSTATIN [Suspect]
     Active Substance: OCTREOTIDE ACETATE
  6. SANDOSTATIN [Suspect]
     Active Substance: OCTREOTIDE ACETATE

REACTIONS (16)
  - Hip fracture [Unknown]
  - Fall [Unknown]
  - Gastrointestinal carcinoma [Unknown]
  - Breast cancer [Unknown]
  - Second primary malignancy [Unknown]
  - Neoplasm progression [Unknown]
  - Pharyngitis streptococcal [Recovered/Resolved]
  - Urinary tract infection [Recovered/Resolved]
  - Arthralgia [Unknown]
  - Eye infection [Unknown]
  - Nasopharyngitis [Unknown]
  - Erythema [Unknown]
  - Oedema peripheral [Unknown]
  - Diarrhoea [Unknown]
  - Injection site mass [Unknown]
  - Incorrect dose administered [Unknown]

NARRATIVE: CASE EVENT DATE: 20180507
